FAERS Safety Report 8459169-4 (Version None)
Quarter: 2012Q2

REPORT INFORMATION
  Report Type: 
  Country: None (occurrence: None)
  Receive Date: 20120622
  Receipt Date: 20120614
  Transmission Date: 20120825
  Serious: Yes (Other)
  Sender: FDA-Public Use
  Company Number: US-ROCHE-1078573

PATIENT
  Sex: Female

DRUGS (5)
  1. XELODA [Suspect]
     Indication: BREAST CANCER METASTATIC
  2. ADRIAMYCIN PFS [Suspect]
     Indication: BREAST CANCER METASTATIC
  3. HERCEPTIN [Suspect]
     Indication: BREAST CANCER METASTATIC
     Dates: start: 20110101
  4. TAXOL [Suspect]
     Indication: BREAST CANCER METASTATIC
     Dates: start: 20110101
  5. TYKERB [Suspect]
     Indication: BREAST CANCER METASTATIC

REACTIONS (2)
  - DISEASE PROGRESSION [None]
  - NO THERAPEUTIC RESPONSE [None]
